FAERS Safety Report 7826273-0 (Version None)
Quarter: 2011Q4

REPORT INFORMATION
  Report Type: 
  Country: None (occurrence: None)
  Receive Date: 20111020
  Receipt Date: 20111010
  Transmission Date: 20120403
  Serious: No
  Sender: FDA-Public Use
  Company Number: US-BIOGENIDEC-2011BI033200

PATIENT
  Age: 44 Year
  Sex: Female

DRUGS (3)
  1. TYSABRI [Suspect]
     Indication: MULTIPLE SCLEROSIS
     Route: 042
     Dates: start: 20100720
  2. IBUPROFEN [Concomitant]
     Indication: PAIN
  3. ASPIRIN [Concomitant]
     Indication: PAIN

REACTIONS (9)
  - DIZZINESS [None]
  - FATIGUE [None]
  - DEPRESSION [None]
  - BALANCE DISORDER [None]
  - GAIT DISTURBANCE [None]
  - MUSCLE SPASMS [None]
  - FALL [None]
  - LIP INJURY [None]
  - NEURALGIA [None]
